FAERS Safety Report 13375815 (Version 3)
Quarter: 2017Q2

REPORT INFORMATION
  Report Type: Spontaneous
  Country: US (occurrence: US)
  Receive Date: 20170328
  Receipt Date: 20170601
  Transmission Date: 20170830
  Serious: No
  Sender: FDA-Public Use
  Company Number: US-TEVA-749530ACC

PATIENT
  Sex: Female

DRUGS (18)
  1. MOBIC [Concomitant]
     Active Substance: MELOXICAM
  2. PRAVASTATIN. [Concomitant]
     Active Substance: PRAVASTATIN
  3. VITAMIN D [Concomitant]
     Active Substance: CHOLECALCIFEROL
  4. ASPIRIN. [Concomitant]
     Active Substance: ASPIRIN
  5. NEXIUM [Concomitant]
     Active Substance: ESOMEPRAZOLE MAGNESIUM
  6. LISINOPRIL. [Concomitant]
     Active Substance: LISINOPRIL
  7. VITAMIN C [Concomitant]
     Active Substance: ASCORBIC ACID
  8. SYMBICORT [Concomitant]
     Active Substance: BUDESONIDE\FORMOTEROL FUMARATE DIHYDRATE
  9. RANITIDINE. [Concomitant]
     Active Substance: RANITIDINE
  10. METFORMIN [Concomitant]
     Active Substance: METFORMIN HYDROCHLORIDE
  11. PANTOPRAZOLE [Concomitant]
     Active Substance: PANTOPRAZOLE
  12. CARBAMAZEPIN [Concomitant]
     Active Substance: CARBAMAZEPINE
  13. ZOFRAN [Concomitant]
     Active Substance: ONDANSETRON HYDROCHLORIDE
  14. VICODIN [Concomitant]
     Active Substance: ACETAMINOPHEN\HYDROCODONE BITARTRATE
  15. IBUPROFEN. [Concomitant]
     Active Substance: IBUPROFEN
  16. MELOXICAM. [Concomitant]
     Active Substance: MELOXICAM
  17. TIZANIDINE. [Concomitant]
     Active Substance: TIZANIDINE
  18. COPAXONE [Suspect]
     Active Substance: GLATIRAMER ACETATE
     Indication: MULTIPLE SCLEROSIS
     Route: 058
     Dates: start: 20150528

REACTIONS (7)
  - Pruritus [Unknown]
  - Motor dysfunction [Not Recovered/Not Resolved]
  - Memory impairment [Not Recovered/Not Resolved]
  - Nausea [Not Recovered/Not Resolved]
  - Headache [Not Recovered/Not Resolved]
  - Contusion [Unknown]
  - Fatigue [Not Recovered/Not Resolved]
